FAERS Safety Report 15584940 (Version 1)
Quarter: 2018Q4

REPORT INFORMATION
  Report Type: Spontaneous
  Country: US (occurrence: US)
  Receive Date: 20181101
  Receipt Date: 20181101
  Transmission Date: 20190205
  Serious: No
  Sender: FDA-Public Use
  Company Number: None

PATIENT
  Age: 30 Year
  Sex: Female
  Weight: 61.23 kg

DRUGS (1)
  1. GAMUNEX-C [Suspect]
     Active Substance: HUMAN IMMUNOGLOBULIN G
     Indication: MYASTHENIA GRAVIS
     Dosage: ?          OTHER FREQUENCY:EVERY 2 WKS ;?
     Route: 042
     Dates: start: 20181018

REACTIONS (5)
  - Chest pain [None]
  - Oropharyngeal pain [None]
  - Dyspnoea [None]
  - Swelling face [None]
  - Pharyngeal paraesthesia [None]

NARRATIVE: CASE EVENT DATE: 20181018
